FAERS Safety Report 20524482 (Version 1)
Quarter: 2022Q1

REPORT INFORMATION
  Report Type: Report from Study
  Country: KR (occurrence: KR)
  Receive Date: 20220228
  Receipt Date: 20220228
  Transmission Date: 20220423
  Serious: Yes (Other)
  Sender: FDA-Public Use
  Company Number: KR-KYOWAKIRIN-2022AKK002336

PATIENT
  Sex: Female

DRUGS (3)
  1. PEGFILGRASTIM [Suspect]
     Active Substance: PEGFILGRASTIM
     Indication: Breast cancer
     Dosage: UNK
     Route: 058
     Dates: start: 20181130
  2. PEGFILGRASTIM [Suspect]
     Active Substance: PEGFILGRASTIM
     Dosage: UNK
     Route: 058
     Dates: start: 20181109
  3. PEGFILGRASTIM [Suspect]
     Active Substance: PEGFILGRASTIM
     Dosage: UNK
     Route: 058
     Dates: start: 20181222

REACTIONS (1)
  - Febrile neutropenia [Recovered/Resolved]

NARRATIVE: CASE EVENT DATE: 20181206
